FAERS Safety Report 24558346 (Version 1)
Quarter: 2024Q4

REPORT INFORMATION
  Report Type: Report from Study
  Country: GR (occurrence: GR)
  Receive Date: 20241029
  Receipt Date: 20241029
  Transmission Date: 20250115
  Serious: Yes (Hospitalization)
  Sender: ABBVIE
  Company Number: GR-ABBVIE-5975571

PATIENT
  Sex: Female
  Weight: 85 kg

DRUGS (2)
  1. CARBIDOPA\LEVODOPA [Suspect]
     Active Substance: CARBIDOPA\LEVODOPA
     Indication: Parkinson^s disease
     Dosage: MORNING DOSE: 10.9ML; CONTINUOUS RATE: 4.1ML/H; EXTRA DOSE: 1.4ML(24-HOUR ADMINISTRATION)
     Route: 050
     Dates: start: 20220721
  2. CARBIDOPA\LEVODOPA [Suspect]
     Active Substance: CARBIDOPA\LEVODOPA
     Dosage: MORNING DOSE: 10.9ML; CONTINUOUS RATE: 3.9ML/H; EXTRA DOSE: 2.4ML (24-HOUR ADMINISTRATION)
     Route: 050

REACTIONS (2)
  - Feeding disorder [Not Recovered/Not Resolved]
  - Dysphagia [Not Recovered/Not Resolved]
